FAERS Safety Report 5318030-4 (Version None)
Quarter: 2007Q2

REPORT INFORMATION
  Report Type: 
  Country: None (occurrence: None)
  Receive Date: 20070507
  Receipt Date: 20070426
  Transmission Date: 20071010
  Serious: Yes (Hospitalization, Disabling, Other)
  Sender: FDA-Public Use
  Company Number: US-JNJFOC-20070500241

PATIENT
  Sex: Female
  Weight: 35.38 kg

DRUGS (12)
  1. REMICADE [Suspect]
     Route: 042
  2. REMICADE [Suspect]
     Indication: RHEUMATOID ARTHRITIS
     Route: 042
  3. PLAQUENIL [Concomitant]
     Indication: RHEUMATOID ARTHRITIS
  4. FOLIC ACID [Concomitant]
     Indication: RHEUMATOID ARTHRITIS
  5. CELEBREX [Concomitant]
     Indication: RHEUMATOID ARTHRITIS
  6. PREDNISONE TAB [Concomitant]
     Indication: ANTIINFLAMMATORY THERAPY
     Route: 048
  7. PROPRANOLOL [Concomitant]
     Indication: HYPERTENSION
  8. TRAMADOL HCL [Concomitant]
     Indication: RHEUMATOID ARTHRITIS
  9. TRAMADOL HCL [Concomitant]
     Indication: PAIN
  10. PERCOCET [Concomitant]
     Indication: PAIN
  11. VITAMIN [Concomitant]
     Indication: EYE DISORDER
  12. NEBULIZER [Concomitant]
     Indication: DYSPNOEA

REACTIONS (4)
  - ABASIA [None]
  - FALL [None]
  - FEMUR FRACTURE [None]
  - HIP FRACTURE [None]
